FAERS Safety Report 9058577 (Version 1)
Quarter: 2013Q1

REPORT INFORMATION
  Report Type: Spontaneous
  Country: CA (occurrence: CA)
  Receive Date: 20130211
  Receipt Date: 20130211
  Transmission Date: 20140127
  Serious: Yes (Other)
  Sender: FDA-Public Use
  Company Number: PHHY2013CA009189

PATIENT
  Age: 39 None
  Sex: Female

DRUGS (3)
  1. GILENYA [Suspect]
     Indication: RELAPSING-REMITTING MULTIPLE SCLEROSIS
     Dosage: 0.5 MG, QD
     Route: 048
     Dates: start: 20121211
  2. VIT D [Concomitant]
  3. TYLENOL [Concomitant]
     Dosage: UNK UKN, PRN

REACTIONS (7)
  - Syncope [Unknown]
  - Loss of consciousness [Unknown]
  - Atrioventricular block first degree [Unknown]
  - Fall [Unknown]
  - Haematoma [Unknown]
  - Stress [Unknown]
  - Memory impairment [Unknown]
